FAERS Safety Report 13416204 (Version 1)
Quarter: 2017Q2

REPORT INFORMATION
  Report Type: Spontaneous
  Country: ES (occurrence: ES)
  Receive Date: 20170407
  Receipt Date: 20170407
  Transmission Date: 20170830
  Serious: Yes (Other)
  Sender: FDA-Public Use
  Company Number: ES-MEDA-2017040002

PATIENT

DRUGS (2)
  1. AFLUON COLIRIO [Suspect]
     Active Substance: AZELASTINE HYDROCHLORIDE
     Route: 064
  2. AFLUON SPRAY NASAL [Suspect]
     Active Substance: AZELASTINE HYDROCHLORIDE
     Route: 064

REACTIONS (2)
  - Foetal exposure during pregnancy [Recovered/Resolved]
  - Deafness [Unknown]

NARRATIVE: CASE EVENT DATE: 2015
